FAERS Safety Report 6946234-3 (Version None)
Quarter: 2010Q3

REPORT INFORMATION
  Report Type: 
  Country: None (occurrence: None)
  Receive Date: 20100824
  Receipt Date: 20100816
  Transmission Date: 20110219
  Serious: Yes (Hospitalization)
  Sender: FDA-Public Use
  Company Number: GRP10000075

PATIENT
  Age: 56 Year
  Sex: Female

DRUGS (2)
  1. ACTONEL WITH CALCIUM (COPACKAGED) [Suspect]
     Indication: OSTEOPOROSIS
     Dosage: 1 DOSE FORM DAILY CYCLICALLY, ORAL
     Route: 048
     Dates: start: 20100204, end: 20100701
  2. FLUOR /00168201/ (SODIUM FLUORIDE) [Concomitant]

REACTIONS (2)
  - CARDIOMYOPATHY [None]
  - OESOPHAGEAL INJURY [None]
